FAERS Safety Report 7175237-1 (Version None)
Quarter: 2010Q4

REPORT INFORMATION
  Report Type: 
  Country: None (occurrence: None)
  Receive Date: 20101207
  Receipt Date: 20101130
  Transmission Date: 20110411
  Serious: Yes (Other)
  Sender: FDA-Public Use
  Company Number: FRP10001241

PATIENT
  Age: 65 Year
  Sex: Male

DRUGS (2)
  1. ACTONEL [Suspect]
     Dosage: ORAL
     Route: 048
     Dates: start: 20100301
  2. PREDNISONE TAB [Concomitant]

REACTIONS (4)
  - CONDITION AGGRAVATED [None]
  - MASTICATION DISORDER [None]
  - MUSCULAR WEAKNESS [None]
  - NEURALGIC AMYOTROPHY [None]
